FAERS Safety Report 14478321 (Version 7)
Quarter: 2018Q4

REPORT INFORMATION
  Report Type: Report from Study
  Country: None (occurrence: US)
  Receive Date: 20180202
  Receipt Date: 20181128
  Transmission Date: 20190204
  Serious: Yes (Hospitalization, Other)
  Sender: FDA-Public Use
  Company Number: US-ABBVIE-17K-163-2053713-00

PATIENT
  Age: 57 Year
  Sex: Female
  Weight: 90.8 kg

DRUGS (4)
  1. MELOXICAM. [Concomitant]
     Active Substance: MELOXICAM
     Indication: ARTHRITIS
     Dates: end: 20171230
  2. HUMIRA [Suspect]
     Active Substance: ADALIMUMAB
     Indication: RHEUMATOID ARTHRITIS
     Route: 058
     Dates: start: 2010, end: 20171230
  3. HUMIRA [Suspect]
     Active Substance: ADALIMUMAB
     Route: 058
     Dates: start: 20180206
  4. LEVOTHYROXINE. [Concomitant]
     Active Substance: LEVOTHYROXINE
     Indication: HYPOTHYROIDISM

REACTIONS (23)
  - Dislocation of vertebra [Recovering/Resolving]
  - Weight increased [Unknown]
  - Procedural pain [Recovering/Resolving]
  - Nasopharyngitis [Unknown]
  - Spinal fracture [Recovering/Resolving]
  - Red blood cell sedimentation rate increased [Not Recovered/Not Resolved]
  - Nerve root compression [Recovering/Resolving]
  - Intentional product misuse [Unknown]
  - Pain in extremity [Not Recovered/Not Resolved]
  - Upper limb fracture [Recovering/Resolving]
  - Arthritis [Unknown]
  - Peripheral swelling [Not Recovered/Not Resolved]
  - Cough [Unknown]
  - Muscle rupture [Unknown]
  - Arthralgia [Recovering/Resolving]
  - Rheumatoid arthritis [Unknown]
  - Aortic occlusion [Unknown]
  - Intervertebral disc degeneration [Unknown]
  - Drug ineffective [Unknown]
  - Dislocation of vertebra [Recovering/Resolving]
  - Joint swelling [Unknown]
  - Sciatica [Unknown]
  - Urticaria [Not Recovered/Not Resolved]

NARRATIVE: CASE EVENT DATE: 2010
